FAERS Safety Report 9943144 (Version 6)
Quarter: 2014Q2

REPORT INFORMATION
  Report Type: Spontaneous
  Country: JP (occurrence: JP)
  Receive Date: 20140303
  Receipt Date: 20140407
  Transmission Date: 20141212
  Serious: Yes (Other)
  Sender: FDA-Public Use
  Company Number: JP-JNJFOC-20140208075

PATIENT
  Age: 69 Year
  Sex: Male

DRUGS (8)
  1. SOVRIAD [Suspect]
     Indication: CHRONIC HEPATITIS C
     Route: 048
     Dates: start: 20140207, end: 20140213
  2. SOVRIAD [Suspect]
     Indication: CHRONIC HEPATITIS C
     Route: 048
     Dates: start: 20140221
  3. PEGINTRON [Suspect]
     Indication: CHRONIC HEPATITIS C
     Route: 058
     Dates: start: 20140207, end: 20140207
  4. PEGINTRON [Suspect]
     Indication: CHRONIC HEPATITIS C
     Route: 058
     Dates: start: 20140221
  5. PEGINTRON [Suspect]
     Indication: CHRONIC HEPATITIS C
     Route: 058
     Dates: start: 20140207, end: 20140207
  6. REBETOL [Concomitant]
     Indication: CHRONIC HEPATITIS C
     Route: 048
     Dates: start: 20140221, end: 20140307
  7. REBETOL [Concomitant]
     Indication: CHRONIC HEPATITIS C
     Route: 048
     Dates: start: 20140207, end: 20140213
  8. URSODEOXYCHOLIC ACID [Concomitant]
     Indication: PRODUCT USED FOR UNKNOWN INDICATION
     Dosage: 18 DF
     Route: 048

REACTIONS (5)
  - Neutrophil count decreased [Recovered/Resolved]
  - Off label use [Unknown]
  - Pyrexia [Recovered/Resolved]
  - Alanine aminotransferase increased [Recovered/Resolved]
  - Aspartate aminotransferase increased [Recovered/Resolved]
